FAERS Safety Report 8373889-1 (Version None)
Quarter: 2012Q2

REPORT INFORMATION
  Report Type: 
  Country: None (occurrence: None)
  Receive Date: 20120521
  Receipt Date: 20120515
  Transmission Date: 20120825
  Serious: Yes (Death, Other)
  Sender: FDA-Public Use
  Company Number: CA-ROCHE-786621

PATIENT
  Sex: Male
  Weight: 90.7 kg

DRUGS (9)
  1. DILANTIN [Concomitant]
  2. ZANTAC [Concomitant]
  3. AVASTIN [Suspect]
     Indication: GLIOBLASTOMA MULTIFORME
     Route: 042
  4. AVASTIN [Suspect]
     Route: 042
     Dates: start: 20110126, end: 20110615
  5. DEXAMETHASONE [Concomitant]
  6. AVASTIN [Suspect]
     Route: 042
  7. VITAMIN B, C + D [Concomitant]
     Dosage: DRUG NAME: VITAMIN B,C,D + E
     Route: 041
  8. TAMOXIFEN CITRATE [Concomitant]
     Dosage: REPORTED DRUG: TEVA TAMOXIFEN
  9. AVASTIN [Suspect]
     Route: 042

REACTIONS (2)
  - RECTAL HAEMORRHAGE [None]
  - DEATH [None]
